FAERS Safety Report 4900451-2 (Version None)
Quarter: 2006Q1

REPORT INFORMATION
  Report Type: 
  Country: None (occurrence: None)
  Receive Date: 20060203
  Receipt Date: 20060127
  Transmission Date: 20060701
  Serious: Yes (Other)
  Sender: FDA-Public Use
  Company Number: 2006AC00186

PATIENT
  Age: 684 Month
  Sex: Male

DRUGS (3)
  1. CRESTOR [Suspect]
     Indication: HYPERCHOLESTEROLAEMIA
     Route: 048
     Dates: start: 20030301, end: 20051207
  2. APROVEL [Concomitant]
     Dates: start: 19950101
  3. ASCAL CARDIO BRISPER [Concomitant]
     Dates: start: 19950101

REACTIONS (1)
  - POLYNEUROPATHY [None]
